FAERS Safety Report 4599773-7 (Version None)
Quarter: 2005Q1

REPORT INFORMATION
  Report Type: 
  Country: None (occurrence: None)
  Receive Date: 20050303
  Receipt Date: 20050216
  Transmission Date: 20050727
  Serious: Yes (Hospitalization)
  Sender: FDA-Public Use
  Company Number: 004214

PATIENT
  Age: 24 Year
  Sex: Female
  Weight: 56.7 kg

DRUGS (4)
  1. CLARAVIS [Suspect]
     Indication: ACNE
     Dosage: SEE IMAGE
     Route: 048
     Dates: start: 20040101, end: 20041115
  2. CLARAVIS [Suspect]
     Indication: ACNE
     Dosage: SEE IMAGE
     Route: 048
     Dates: start: 20041101, end: 20041115
  3. SOTRET (ISOTRETINOIN) [Suspect]
     Indication: ACNE
     Dates: start: 20041101, end: 20041101
  4. TRI-LEVLEN (ETHINYLESTRADIOL, LEVONORGFESTREL) [Suspect]
     Indication: ORAL CONTRACEPTION
     Dosage: 1.00 TABLET, QD, ORAL
     Route: 048
     Dates: start: 20040101, end: 20041115

REACTIONS (5)
  - ARTERIAL THROMBOSIS LIMB [None]
  - OEDEMA PERIPHERAL [None]
  - PERIPHERAL VASCULAR DISORDER [None]
  - SUBCLAVIAN VEIN THROMBOSIS [None]
  - THORACIC OUTLET SYNDROME [None]
